FAERS Safety Report 6438921-0 (Version None)
Quarter: 2009Q4

REPORT INFORMATION
  Report Type: 
  Country: None (occurrence: None)
  Receive Date: 20091112
  Receipt Date: 20091112
  Transmission Date: 20100525
  Serious: Yes (Hospitalization)
  Sender: FDA-Public Use
  Company Number: None

PATIENT
  Age: 75 Year
  Sex: Male
  Weight: 85.7 kg

DRUGS (16)
  1. ABILIFY [Suspect]
     Indication: AFFECTIVE DISORDER
     Dosage: 20MG PO QD
     Route: 048
     Dates: start: 20070901
  2. ALBUTEROL/IPRATROP BR [Concomitant]
  3. ASPIRIN [Concomitant]
  4. CLOPIDROGEL [Concomitant]
  5. FUROSEMIDE [Concomitant]
  6. GABAPENTIN [Concomitant]
  7. INSULIN [Concomitant]
  8. ISOSORBIDE DINITRATE [Concomitant]
  9. LISINOPRIL [Concomitant]
  10. NIACIN [Concomitant]
  11. NITROGLYCERIN [Concomitant]
  12. OMEPRAZOLE [Concomitant]
  13. SERTRALINE HCL [Concomitant]
  14. SIMVASTATIN [Concomitant]
  15. BACTRIM [Concomitant]
  16. LOPRAMIDE [Concomitant]

REACTIONS (4)
  - BLOOD PRESSURE ORTHOSTATIC [None]
  - DEHYDRATION [None]
  - RENAL FAILURE ACUTE [None]
  - VIRAL DIARRHOEA [None]
